FAERS Safety Report 9660954 (Version 1)
Quarter: 2013Q4

REPORT INFORMATION
  Report Type: Spontaneous
  Country: US (occurrence: US)
  Receive Date: 20131031
  Receipt Date: 20131031
  Transmission Date: 20140711
  Serious: Yes (Other)
  Sender: FDA-Public Use
  Company Number: US-PFIZER INC-2013311457

PATIENT
  Age: 66 Year
  Sex: Female
  Weight: 85.71 kg

DRUGS (2)
  1. LYRICA [Suspect]
     Indication: DIABETES MELLITUS
     Dosage: 75MG IN MORNING AND 150MG AT NIGHT
     Dates: start: 2012
  2. LYRICA [Suspect]
     Indication: ARTHRITIS
     Dosage: 100 MG, 2X/DAY

REACTIONS (2)
  - Off label use [Unknown]
  - Cerebrovascular accident [Unknown]
